FAERS Safety Report 5285109-5 (Version None)
Quarter: 2007Q2

REPORT INFORMATION
  Report Type: 
  Country: None (occurrence: None)
  Receive Date: 20070403
  Receipt Date: 20070322
  Transmission Date: 20071010
  Serious: Yes (Hospitalization, Other)
  Sender: FDA-Public Use
  Company Number: US-PFIZER INC-2007022826

PATIENT
  Sex: Female

DRUGS (6)
  1. NEURONTIN [Suspect]
     Indication: CONVULSION
  2. ZOLOFT [Suspect]
  3. FLEXERIL [Suspect]
  4. ACETYLSALICYLIC ACID SRT [Concomitant]
  5. DILANTIN [Concomitant]
  6. BENADRYL [Concomitant]

REACTIONS (8)
  - BLOOD CREATININE INCREASED [None]
  - CONFUSIONAL STATE [None]
  - DRUG INEFFECTIVE [None]
  - HYPOGLYCAEMIA [None]
  - LIVER TRANSPLANT [None]
  - MULTIPLE DRUG OVERDOSE [None]
  - OLIGURIA [None]
  - SUICIDE ATTEMPT [None]
